FAERS Safety Report 9479272 (Version 3)
Quarter: 2013Q3

REPORT INFORMATION
  Report Type: Spontaneous
  Country: TR (occurrence: TR)
  Receive Date: 20130827
  Receipt Date: 20130916
  Transmission Date: 20140515
  Serious: Yes (Death, Other)
  Sender: FDA-Public Use
  Company Number: PHHY2013TR091876

PATIENT
  Age: 37 Year
  Sex: Male
  Weight: 50 kg

DRUGS (2)
  1. GILENYA [Suspect]
     Indication: MULTIPLE SCLEROSIS
     Dosage: 0.5 MG, QD
     Route: 048
  2. GABAPENTIN [Concomitant]
     Indication: NEURALGIA
     Dosage: 300 MG, DAILY
     Route: 048
     Dates: start: 20130617

REACTIONS (10)
  - Cardiac arrest [Fatal]
  - Pulse abnormal [Fatal]
  - Sepsis [Fatal]
  - Infection [Fatal]
  - Pyrexia [Fatal]
  - Blood urea increased [Fatal]
  - General physical condition abnormal [Fatal]
  - Blood creatinine increased [Fatal]
  - Lymphocyte count decreased [Unknown]
  - Aphagia [Unknown]
